FAERS Safety Report 5097827-2 (Version None)
Quarter: 2006Q3

REPORT INFORMATION
  Report Type: 
  Country: None (occurrence: None)
  Receive Date: 20060731
  Receipt Date: 20060421
  Transmission Date: 20061208
  Serious: Yes (Other)
  Sender: FDA-Public Use
  Company Number: 224392

PATIENT
  Age: 67 Year
  Sex: 0

DRUGS (2)
  1. HERCEPTIN [Suspect]
     Indication: DRUG USE FOR UNKNOWN INDICATION
     Dosage: 150 MG, 1/WEEK
     Dates: start: 20010208, end: 20060420
  2. CHEMOTHERAPY DRUG NOS (ANTINEOPLASTIC AGENT NOS) [Concomitant]

REACTIONS (1)
  - EJECTION FRACTION DECREASED [None]
